FAERS Safety Report 7729231-X (Version None)
Quarter: 2011Q3

REPORT INFORMATION
  Report Type: 
  Country: None (occurrence: None)
  Receive Date: 20110906
  Receipt Date: 20110830
  Transmission Date: 20111222
  Serious: Yes (Other)
  Sender: FDA-Public Use
  Company Number: US-PFIZER INC-2011203564

PATIENT
  Age: 55 Year
  Sex: Male

DRUGS (2)
  1. PRISTIQ [Suspect]
     Indication: DEPRESSION
     Dosage: 100 MG, DAILY
     Route: 048
     Dates: start: 20090101
  2. GEODON [Suspect]
     Dosage: UNK, DAILY
     Dates: start: 20100101

REACTIONS (2)
  - HYPERTENSION [None]
  - FLUSHING [None]
